FAERS Safety Report 8101004-8 (Version None)
Quarter: 2012Q1

REPORT INFORMATION
  Report Type: 
  Country: None (occurrence: None)
  Receive Date: 20120129
  Receipt Date: 20111115
  Transmission Date: 20120608
  Serious: No
  Sender: FDA-Public Use
  Company Number: US-ABBOTT-11P-163-0874481-00

PATIENT
  Age: 41 Year
  Sex: Female

DRUGS (7)
  1. LUNESTA [Concomitant]
     Indication: INSOMNIA
     Dates: start: 20110501
  2. CYMBALTA [Concomitant]
     Indication: DEPRESSION
     Dates: start: 20110901
  3. FOLIC ACID [Concomitant]
     Indication: PRODUCT USED FOR UNKNOWN INDICATION
  4. HUMIRA [Suspect]
     Indication: RHEUMATOID ARTHRITIS
     Dates: start: 20110101
  5. ORAL CONTRACEPTIVE NOS [Concomitant]
     Indication: CONTRACEPTION
     Dates: start: 20110901
  6. PREDNISONE TAB [Concomitant]
     Indication: PRODUCT USED FOR UNKNOWN INDICATION
  7. METHOTREXATE [Concomitant]
     Indication: PRODUCT USED FOR UNKNOWN INDICATION
     Dosage: 2.5MG X 5 PILLS PER WEEK

REACTIONS (4)
  - INJECTION SITE PAPULE [None]
  - INCORRECT DOSE ADMINISTERED [None]
  - DEVICE MALFUNCTION [None]
  - EXPIRED DRUG ADMINISTERED [None]
